FAERS Safety Report 8834826 (Version 2)
Quarter: 2012Q4

REPORT INFORMATION
  Report Type: 
  Country: GB (occurrence: GB)
  Receive Date: 20121010
  Receipt Date: 20121018
  Transmission Date: 20130627
  Serious: Yes (Other)
  Sender: FDA-Public Use
  Company Number: GB-VIIV HEALTHCARE LIMITED-B0834689A

PATIENT

DRUGS (3)
  1. ABACAVIR [Suspect]
     Dates: start: 20120816
  2. ISENTRESS [Suspect]
     Route: 048
     Dates: start: 20120816
  3. DARUNAVIR [Suspect]
     Dates: start: 20120812

REACTIONS (1)
  - Drug reaction with eosinophilia and systemic symptoms [Unknown]
